FAERS Safety Report 4524416-8 (Version None)
Quarter: 2004Q4

REPORT INFORMATION
  Report Type: 
  Country: None (occurrence: None)
  Receive Date: 20041119
  Receipt Date: 20040115
  Transmission Date: 20050328
  Serious: Yes (Death, Life-Threatening, Hospitalization)
  Sender: FDA-Public Use
  Company Number: MSER20040001

PATIENT
  Age: 40 Year
  Sex: Female

DRUGS (4)
  1. MORPHINE SULFATE [Suspect]
     Dosage: PO
     Route: 048
     Dates: start: 20020101, end: 20020101
  2. PERCOCET [Suspect]
     Dosage: PO
     Route: 048
     Dates: start: 20020101, end: 20020101
  3. ACETAMINOP [Suspect]
     Dates: start: 20020101, end: 20020101
  4. AMITRIPTYLINE HCL [Suspect]
     Dosage: PO
     Route: 048
     Dates: start: 20020101, end: 20020101

REACTIONS (5)
  - ALANINE AMINOTRANSFERASE INCREASED [None]
  - ANOXIC ENCEPHALOPATHY [None]
  - ASPARTATE AMINOTRANSFERASE INCREASED [None]
  - COMA [None]
  - COMPLETED SUICIDE [None]
